FAERS Safety Report 7003142-X (Version None)
Quarter: 2010Q3

REPORT INFORMATION
  Report Type: 
  Country: None (occurrence: None)
  Receive Date: 20100920
  Receipt Date: 20100309
  Transmission Date: 20110219
  Serious: Yes (Hospitalization)
  Sender: FDA-Public Use
  Company Number: US-ASTRAZENECA-2009SE19422

PATIENT
  Age: 15520 Day
  Weight: 117.9 kg

DRUGS (6)
  1. SEROQUEL [Suspect]
     Indication: DEPRESSION
     Route: 048
     Dates: start: 20030101, end: 20050101
  2. SEROQUEL [Suspect]
     Indication: BIPOLAR DISORDER
     Route: 048
     Dates: start: 20030101, end: 20050101
  3. ZYPREXA [Concomitant]
     Indication: SCHIZOPHRENIA
     Dates: start: 20030101, end: 20040101
  4. PAXIL [Concomitant]
     Indication: BIPOLAR DISORDER
  5. RISPERDAL [Concomitant]
     Dates: start: 20090101
  6. CITALOPRAM HYDROBROMIDE [Concomitant]

REACTIONS (2)
  - BACK PAIN [None]
  - TYPE 2 DIABETES MELLITUS [None]
